FAERS Safety Report 19089011 (Version 1)
Quarter: 2021Q2

REPORT INFORMATION
  Report Type: Spontaneous
  Country: FR (occurrence: FR)
  Receive Date: 20210403
  Receipt Date: 20210403
  Transmission Date: 20210717
  Serious: Yes (Other)
  Sender: FDA-Public Use
  Company Number: FR-TEVA-2021-FR-1896449

PATIENT
  Age: 22 Year
  Sex: Female

DRUGS (2)
  1. RISPERIDONE. [Concomitant]
     Active Substance: RISPERIDONE
  2. REPAGLINIDE. [Suspect]
     Active Substance: REPAGLINIDE
     Indication: PRODUCT DISPENSING ERROR
     Dosage: 3 MG
     Route: 048
     Dates: start: 20201102

REACTIONS (3)
  - Product dispensing error [Recovered/Resolved]
  - Condition aggravated [Recovered/Resolved]
  - Presyncope [Recovered/Resolved]

NARRATIVE: CASE EVENT DATE: 202011
